FAERS Safety Report 16404460 (Version 1)
Quarter: 2019Q2

REPORT INFORMATION
  Report Type: Spontaneous
  Country: US (occurrence: US)
  Receive Date: 20190607
  Receipt Date: 20190607
  Transmission Date: 20190711
  Serious: No
  Sender: FDA-Public Use
  Company Number: US-PTC THERAPEUTICS, INC.-US-2019PTC000550

PATIENT
  Age: 15 Year
  Sex: Male

DRUGS (1)
  1. EMFLAZA [Suspect]
     Active Substance: DEFLAZACORT
     Indication: MUSCULAR DYSTROPHY
     Dosage: 18 MG, QD (1 TABLET)
     Route: 048
     Dates: start: 20171115

REACTIONS (3)
  - Decreased appetite [Unknown]
  - Depression [Unknown]
  - Abscess [Unknown]

NARRATIVE: CASE EVENT DATE: 20190301
